FAERS Safety Report 6076436-2 (Version None)
Quarter: 2009Q1

REPORT INFORMATION
  Report Type: 
  Country: None (occurrence: None)
  Receive Date: 20090212
  Receipt Date: 20090212
  Transmission Date: 20090719
  Serious: Yes (Other)
  Sender: FDA-Public Use
  Company Number: None

PATIENT
  Sex: Female
  Weight: 62.1428 kg

DRUGS (1)
  1. OCELLA 3MG/0.30MG SHAPING WOMEN'S HEALTH BAR LAB [Suspect]
     Indication: HYPOMENORRHOEA
     Dosage: 3MG 1 PER DAY
     Dates: start: 20080801, end: 20080830

REACTIONS (3)
  - DRUG INTOLERANCE [None]
  - NAUSEA [None]
  - VOMITING [None]
